FAERS Safety Report 5054993-2 (Version None)
Quarter: 2006Q3

REPORT INFORMATION
  Report Type: 
  Country: None (occurrence: None)
  Receive Date: 20060719
  Receipt Date: 20060630
  Transmission Date: 20061208
  Serious: Yes (Other)
  Sender: FDA-Public Use
  Company Number: JP-JPN-A200602368

PATIENT
  Age: 44 Year
  Sex: Male

DRUGS (13)
  1. VALTREX [Suspect]
     Indication: HERPES SIMPLEX
     Dosage: 500MG TWICE PER DAY
     Route: 048
     Dates: start: 20041204, end: 20041205
  2. ZITHROMAC [Suspect]
     Indication: PHARYNGITIS
     Dosage: 500MG PER DAY
     Route: 048
     Dates: start: 20041204, end: 20041206
  3. MUCOSOLVAN [Concomitant]
     Indication: BRONCHITIS
     Dosage: 135MG PER DAY
     Route: 048
     Dates: start: 20041204, end: 20041208
  4. SELBEX [Concomitant]
     Indication: GASTRITIS
     Dosage: 1.5MG PER DAY
     Route: 048
     Dates: start: 20041204, end: 20041208
  5. THEOLONG [Concomitant]
     Indication: BRONCHITIS
     Dosage: 200MG PER DAY
     Route: 048
     Dates: start: 20041204, end: 20041208
  6. CRAVIT [Concomitant]
     Indication: BRONCHITIS
     Dosage: 300MG PER DAY
     Route: 048
     Dates: start: 20041207, end: 20041210
  7. NIPOLAZIN [Concomitant]
     Indication: RHINITIS
     Dosage: 6MG PER DAY
     Route: 048
     Dates: start: 20041204, end: 20041208
  8. GASTER D [Concomitant]
     Indication: GASTRITIS
     Dosage: 20MG PER DAY
     Route: 048
     Dates: start: 20041204, end: 20041208
  9. BIOFERMIN [Concomitant]
     Dosage: .9G PER DAY
     Route: 048
     Dates: start: 20041204, end: 20041208
  10. ISALON [Concomitant]
     Dosage: 1.5G PER DAY
     Route: 048
     Dates: start: 20041209, end: 20041210
  11. NORMOSAN FIX [Concomitant]
     Dosage: 1.5G PER DAY
     Route: 048
     Dates: start: 20041209, end: 20041210
  12. KELNAC [Concomitant]
     Dosage: 240MG PER DAY
     Route: 048
     Dates: start: 20041209, end: 20041210
  13. ALTAT [Concomitant]
     Dosage: 150MG PER DAY
     Route: 048
     Dates: start: 20041209, end: 20041210

REACTIONS (8)
  - ANOREXIA [None]
  - DECREASED APPETITE [None]
  - DIARRHOEA [None]
  - HEPATIC FUNCTION ABNORMAL [None]
  - LIVER DISORDER [None]
  - MALAISE [None]
  - PYREXIA [None]
  - RASH [None]
